FAERS Safety Report 4759320-3 (Version None)
Quarter: 2005Q3

REPORT INFORMATION
  Report Type: 
  Country: None (occurrence: None)
  Receive Date: 20050826
  Receipt Date: 20050510
  Transmission Date: 20060218
  Serious: No
  Sender: FDA-Public Use
  Company Number: 214345

PATIENT
  Age: 49 Year
  Sex: Female
  Weight: 110 kg

DRUGS (3)
  1. RAPTIVA [Suspect]
     Indication: PSORIASIS
     Dosage: 1/WEEK, SUBCUTANEOUS
     Route: 058
     Dates: end: 20050509
  2. TRIAMCINOLONE [Concomitant]
  3. FLUOCINONIDE [Concomitant]

REACTIONS (1)
  - PUSTULAR PSORIASIS [None]
